FAERS Safety Report 14492507 (Version 2)
Quarter: 2018Q1

REPORT INFORMATION
  Report Type: Spontaneous
  Country: JP (occurrence: JP)
  Receive Date: 20180206
  Receipt Date: 20180208
  Transmission Date: 20180509
  Serious: Yes (Life-Threatening, Hospitalization, Disabling)
  Sender: FDA-Public Use
  Company Number: JP-TEVA-2018-JP-853393

PATIENT
  Age: 62 Year
  Sex: Female

DRUGS (2)
  1. HEPARIN [Suspect]
     Active Substance: HEPARIN SODIUM
     Indication: THROMBOSIS PROPHYLAXIS
     Dosage: 3000 THOUSAND UNITS ON DAY 1 FROM A CATHETER INSERTED INTO THE RIGHT FEMORAL ARTERY, FOLLOWED BY ...
     Route: 013
  2. HEPARIN [Suspect]
     Active Substance: HEPARIN SODIUM
     Indication: THROMBOSIS PROPHYLAXIS
     Dosage: 10000 UNITS/DAY VIA THE RIGHT INTERNAL JUGULAR VEIN UNTIL DAY 3
     Route: 042

REACTIONS (7)
  - Cyanosis [Unknown]
  - Localised infection [Not Recovered/Not Resolved]
  - Haemorrhage [Recovered/Resolved]
  - Gangrene [Recovered/Resolved with Sequelae]
  - Peripheral swelling [Unknown]
  - Heparin-induced thrombocytopenia [Not Recovered/Not Resolved]
  - Heparin-induced thrombocytopenia [Recovered/Resolved]
